FAERS Safety Report 7878438-X (Version None)
Quarter: 2011Q4

REPORT INFORMATION
  Report Type: 
  Country: None (occurrence: None)
  Receive Date: 20111101
  Receipt Date: 20111020
  Transmission Date: 20120403
  Serious: Yes (Hospitalization)
  Sender: FDA-Public Use
  Company Number: JP-AMGEN-JPNCT2010004664

PATIENT
  Age: 75 Year
  Sex: Male
  Weight: 72 kg

DRUGS (11)
  1. TOPOTECAN [Suspect]
     Indication: COLORECTAL CANCER
     Dosage: 90 MG, QWK
     Route: 041
     Dates: start: 20101022, end: 20110204
  2. CORTICOSTEROIDS [Concomitant]
     Indication: DERMATITIS ACNEIFORM
  3. CORTICOSTEROIDS [Concomitant]
     Indication: PARONYCHIA
  4. MINOCYCLINE HCL [Concomitant]
     Route: 048
  5. PANITUMUMAB [Suspect]
     Indication: COLORECTAL CANCER
     Dosage: 6 MG/KG, Q2WK
     Route: 041
     Dates: start: 20101022
  6. CORTICOSTEROIDS [Concomitant]
     Indication: PROPHYLAXIS
  7. DECADRON [Concomitant]
     Route: 042
  8. TOPOTECAN [Suspect]
     Dosage: 90 UNK, QWK
     Route: 041
     Dates: start: 20110218
  9. ANTIHISTAMINES [Concomitant]
     Indication: PROPHYLAXIS
  10. LYRICA [Concomitant]
     Route: 048
  11. KYTRIL [Concomitant]
     Route: 042

REACTIONS (3)
  - FEBRILE NEUTROPENIA [None]
  - DERMATITIS ACNEIFORM [None]
  - PARONYCHIA [None]
